FAERS Safety Report 9265625 (Version 2)
Quarter: 2013Q3

REPORT INFORMATION
  Report Type: Spontaneous
  Country: BR (occurrence: BR)
  Receive Date: 20130501
  Receipt Date: 20130708
  Transmission Date: 20140515
  Serious: Yes (Other)
  Sender: FDA-Public Use
  Company Number: BR-ABBOTT-13P-020-1082661-00

PATIENT
  Sex: Male

DRUGS (3)
  1. KALETRA [Suspect]
     Indication: PRODUCT USED FOR UNKNOWN INDICATION
  2. LAMIVUDINE [Concomitant]
     Indication: ANTIRETROVIRAL THERAPY
     Dates: start: 2008
  3. ZIDOVUDINE [Concomitant]
     Indication: ANTIRETROVIRAL THERAPY
     Dates: start: 2008

REACTIONS (3)
  - Drug-induced liver injury [Unknown]
  - Aspartate aminotransferase abnormal [Unknown]
  - Alanine aminotransferase abnormal [Unknown]
